FAERS Safety Report 7717783-5 (Version None)
Quarter: 2011Q3

REPORT INFORMATION
  Report Type: 
  Country: None (occurrence: None)
  Receive Date: 20110824
  Receipt Date: 20110808
  Transmission Date: 20111222
  Serious: Yes (Other)
  Sender: FDA-Public Use
  Company Number: SIM_00025_2011

PATIENT
  Age: 9 Year
  Sex: Female

DRUGS (1)
  1. TOPCARE SWIMMERS EAR [Suspect]
     Indication: CONJUNCTIVITIS INFECTIVE
     Dosage: (1 GTT 1X OPHTHALMIC)
     Route: 047
     Dates: start: 20110303, end: 20110303

REACTIONS (5)
  - EYE PAIN [None]
  - WRONG DRUG ADMINISTERED [None]
  - SCREAMING [None]
  - OCULAR HYPERAEMIA [None]
  - PRODUCT LABEL ON WRONG PRODUCT [None]
